FAERS Safety Report 4702621-5 (Version None)
Quarter: 2005Q2

REPORT INFORMATION
  Report Type: 
  Country: None (occurrence: None)
  Receive Date: 20050629
  Receipt Date: 20050509
  Transmission Date: 20051028
  Serious: Yes (Death, Disabling, Other)
  Sender: FDA-Public Use
  Company Number: PHBS2005JP06586

PATIENT
  Age: 21 Year
  Sex: Male

DRUGS (2)
  1. STEROIDS NOS [Suspect]
     Indication: BONE MARROW TRANSPLANT
  2. SANDIMMUNE [Suspect]
     Indication: BONE MARROW TRANSPLANT
     Dosage: 180 MG/D
     Route: 041
     Dates: start: 20050408, end: 20050503

REACTIONS (5)
  - INFECTION [None]
  - LIFE SUPPORT [None]
  - LIVER DISORDER [None]
  - RESTLESSNESS [None]
  - TOXIC INDUCED ENCEPHALOPATHY [None]
